FAERS Safety Report 5566730-3 (Version None)
Quarter: 2007Q4

REPORT INFORMATION
  Report Type: 
  Country: None (occurrence: None)
  Receive Date: 20071219
  Receipt Date: 20071210
  Transmission Date: 20080405
  Serious: Yes (Hospitalization)
  Sender: FDA-Public Use
  Company Number: AU-AMGEN-QUU256182

PATIENT
  Sex: Female

DRUGS (4)
  1. NEULASTA [Suspect]
     Indication: CHEMOTHERAPY
     Route: 065
     Dates: start: 20070918
  2. FLUOROURACIL [Concomitant]
     Dates: start: 20070918
  3. EPIRUBICIN [Concomitant]
     Dates: start: 20070918
  4. CYCLOPHOSPHAMIDE [Concomitant]
     Dates: start: 20070918

REACTIONS (1)
  - FEBRILE NEUTROPENIA [None]
